FAERS Safety Report 5920103-X (Version None)
Quarter: 2008Q4

REPORT INFORMATION
  Report Type: 
  Country: None (occurrence: None)
  Receive Date: 20081015
  Receipt Date: 20081015
  Transmission Date: 20090506
  Serious: No
  Sender: FDA-Public Use
  Company Number: None

PATIENT
  Sex: Female
  Weight: 21.3191 kg

DRUGS (3)
  1. SINGULAIR [Suspect]
     Indication: ASTHMA
     Dosage: 4 MG Q DAY ORAL
     Route: 048
     Dates: start: 20070601, end: 20080930
  2. FLOVENT HFA [Concomitant]
  3. ALBUTEROL [Concomitant]

REACTIONS (5)
  - ABNORMAL BEHAVIOUR [None]
  - ANXIETY [None]
  - EDUCATIONAL PROBLEM [None]
  - EXCESSIVE EYE BLINKING [None]
  - FEAR [None]
